FAERS Safety Report 7507481-5 (Version None)
Quarter: 2011Q2

REPORT INFORMATION
  Report Type: 
  Country: None (occurrence: None)
  Receive Date: 20110526
  Receipt Date: 20110311
  Transmission Date: 20111010
  Serious: No
  Sender: FDA-Public Use
  Company Number: US-MYLANLABS-2011S1004655

PATIENT
  Age: 41 Year
  Sex: Female

DRUGS (3)
  1. VALACYCLOVIR HYDROCHLORIDE [Suspect]
     Indication: ORAL HERPES
     Dosage: PATIENT TAKES 2G BID DURING OUTBREAK FOR 1 DAY.
     Route: 048
     Dates: start: 20101101, end: 20101101
  2. VALACYCLOVIR HYDROCHLORIDE [Suspect]
     Dosage: PATIENT TAKES 2G BID DURING OUTBREAK FOR 1 DAY.
     Route: 048
     Dates: start: 20101201, end: 20101201
  3. VALACYCLOVIR HYDROCHLORIDE [Suspect]
     Dosage: PATIENT TAKES 2G BID DURING OUTBREAK FOR 1 DAY.
     Route: 048
     Dates: start: 20110201, end: 20110201

REACTIONS (4)
  - NAUSEA [None]
  - DRUG INEFFECTIVE [None]
  - FLATULENCE [None]
  - ORAL HERPES [None]
